FAERS Safety Report 10977668 (Version 1)
Quarter: 2015Q2

REPORT INFORMATION
  Report Type: Spontaneous
  Country: US (occurrence: None)
  Receive Date: 20150401
  Receipt Date: 20150401
  Transmission Date: 20150821
  Serious: Yes (Disabling, Other)
  Sender: FDA-Public Use
  Company Number: None

PATIENT
  Age: 48 Year
  Sex: Female
  Weight: 77.57 kg

DRUGS (9)
  1. METOPROLOL [Concomitant]
     Active Substance: METOPROLOL
  2. BELVIQ [Suspect]
     Active Substance: LORCASERIN HYDROCHLORIDE
     Indication: WEIGHT LOSS DIET
     Dosage: 1
     Route: 048
     Dates: start: 20150225, end: 20150329
  3. CRESTOR [Concomitant]
     Active Substance: ROSUVASTATIN CALCIUM
  4. OMEPRAZOLE. [Concomitant]
     Active Substance: OMEPRAZOLE
  5. LOSARTAN [Concomitant]
     Active Substance: LOSARTAN
  6. ASPIRIN. [Concomitant]
     Active Substance: ASPIRIN
  7. LEVOTHYROXINE [Concomitant]
     Active Substance: LEVOTHYROXINE
  8. CALCIUM [Concomitant]
     Active Substance: CALCIUM
  9. VITAMIN D [Concomitant]
     Active Substance: CHOLECALCIFEROL

REACTIONS (10)
  - Abdominal pain upper [None]
  - Memory impairment [None]
  - Fatigue [None]
  - Palpitations [None]
  - Dehydration [None]
  - Diarrhoea [None]
  - Dizziness [None]
  - Headache [None]
  - Chills [None]
  - Suicidal ideation [None]

NARRATIVE: CASE EVENT DATE: 20150313
